FAERS Safety Report 12417670 (Version 2)
Quarter: 2016Q3

REPORT INFORMATION
  Report Type: Spontaneous
  Country: US (occurrence: US)
  Receive Date: 20160530
  Receipt Date: 20160727
  Transmission Date: 20161109
  Serious: No
  Sender: FDA-Public Use
  Company Number: US-009507513-1605USA004535

PATIENT
  Sex: Female

DRUGS (2)
  1. DULERA [Suspect]
     Active Substance: FORMOTEROL FUMARATE DIHYDRATE\MOMETASONE FUROATE
     Indication: ASTHMA
     Dosage: 200/5MCG, FREQUENCY UNSPECIFIED
     Route: 059
  2. DULERA [Suspect]
     Active Substance: FORMOTEROL FUMARATE DIHYDRATE\MOMETASONE FUROATE
     Dosage: 200/5MCG, FREQUENCY UNSPECIFIED
     Route: 059

REACTIONS (4)
  - Drug dose omission [Unknown]
  - Incorrect route of drug administration [Unknown]
  - Dyspnoea [Not Recovered/Not Resolved]
  - Product container issue [Unknown]
